FAERS Safety Report 4359341-9 (Version None)
Quarter: 2004Q2

REPORT INFORMATION
  Report Type: 
  Country: None (occurrence: None)
  Receive Date: 20040512
  Receipt Date: 20040428
  Transmission Date: 20050107
  Serious: Yes (Hospitalization, Disabling)
  Sender: FDA-Public Use
  Company Number: FR_031103131

PATIENT
  Age: 62 Year
  Sex: Female
  Weight: 52 kg

DRUGS (1)
  1. EVISTA [Suspect]
     Indication: OSTEOPOROSIS PROPHYLAXIS
     Dosage: 60 MG/DAY
     Dates: start: 20030901, end: 20031011

REACTIONS (5)
  - BLINDNESS UNILATERAL [None]
  - FALL [None]
  - INJURY [None]
  - LOSS OF CONSCIOUSNESS [None]
  - OPTIC NEUROPATHY [None]
